FAERS Safety Report 11886707 (Version 4)
Quarter: 2016Q3

REPORT INFORMATION
  Report Type: Spontaneous
  Country: US (occurrence: US)
  Receive Date: 20160104
  Receipt Date: 20160711
  Transmission Date: 20161109
  Serious: No
  Sender: FDA-Public Use
  Company Number: US-PFIZER INC-2015478467

PATIENT
  Age: 49 Year
  Sex: Female
  Weight: 86 kg

DRUGS (6)
  1. IBUPROFEN. [Concomitant]
     Active Substance: IBUPROFEN
     Dosage: UNK
  2. TOPIRAMATE. [Concomitant]
     Active Substance: TOPIRAMATE
     Dosage: UNK (AT ONE TIME)
  3. LYRICA [Suspect]
     Active Substance: PREGABALIN
     Indication: TRIGEMINAL NEURALGIA
     Dosage: 300 MG, 2X/DAY (IN THE AM AND AT NIGHT)
     Route: 048
     Dates: start: 2014
  4. INDOMETHACIN. [Concomitant]
     Active Substance: INDOMETHACIN
     Dosage: UNK
  5. LYRICA [Suspect]
     Active Substance: PREGABALIN
     Indication: NEURALGIA
     Dosage: 400 MG, DAILY (250 MG IN THE MORNING AND 150 MG AT NIGHT)
     Dates: start: 2015
  6. GABAPENTIN. [Concomitant]
     Active Substance: GABAPENTIN
     Dosage: UNK (AT ONE TIME)

REACTIONS (11)
  - Weight increased [Not Recovered/Not Resolved]
  - Confusional state [Recovering/Resolving]
  - Memory impairment [Unknown]
  - Vomiting [Unknown]
  - Anxiety [Unknown]
  - Cognitive disorder [Not Recovered/Not Resolved]
  - Stress [Unknown]
  - Impaired work ability [Recovering/Resolving]
  - Condition aggravated [Not Recovered/Not Resolved]
  - Vision blurred [Not Recovered/Not Resolved]
  - Drug effect incomplete [Unknown]
